FAERS Safety Report 18483866 (Version 1)
Quarter: 2020Q4

REPORT INFORMATION
  Report Type: Spontaneous
  Country: US (occurrence: US)
  Receive Date: 20201109
  Receipt Date: 20201109
  Transmission Date: 20210114
  Serious: No
  Sender: FDA-Public Use
  Company Number: US-009507513-2010USA009966

PATIENT
  Sex: Female
  Weight: 92 kg

DRUGS (2)
  1. BRIDION [Suspect]
     Active Substance: SUGAMMADEX
     Indication: PRODUCT USED FOR UNKNOWN INDICATION
     Dosage: 2 MG/KG
  2. BRIDION [Suspect]
     Active Substance: SUGAMMADEX
     Dosage: ADDITIONAL 1 MG/KG

REACTIONS (2)
  - Drug ineffective [Recovered/Resolved]
  - Muscle twitching [Recovered/Resolved]
